FAERS Safety Report 7675820-0 (Version None)
Quarter: 2011Q3

REPORT INFORMATION
  Report Type: 
  Country: None (occurrence: None)
  Receive Date: 20110810
  Receipt Date: 20110801
  Transmission Date: 20111222
  Serious: Yes (Hospitalization, Other)
  Sender: FDA-Public Use
  Company Number: US-ASTRAZENECA-2011SE46006

PATIENT
  Age: 60 Year
  Sex: Female

DRUGS (1)
  1. NEXIUM [Suspect]
     Route: 048

REACTIONS (5)
  - HYPOKINESIA [None]
  - SALIVARY GLAND NEOPLASM [None]
  - NEOPLASM [None]
  - TUMOUR EXCISION [None]
  - DRUG DOSE OMISSION [None]
